FAERS Safety Report 4665801-3 (Version None)
Quarter: 2005Q2

REPORT INFORMATION
  Report Type: 
  Country: None (occurrence: None)
  Receive Date: 20050519
  Receipt Date: 20050315
  Transmission Date: 20051028
  Serious: No
  Sender: FDA-Public Use
  Company Number: US-GLAXOSMITHKLINE-A0549867A

PATIENT

DRUGS (1)
  1. LOTRONEX [Suspect]
     Route: 048

REACTIONS (2)
  - DIARRHOEA [None]
  - DRUG INEFFECTIVE [None]
